FAERS Safety Report 6785428-7 (Version None)
Quarter: 2010Q2

REPORT INFORMATION
  Report Type: 
  Country: None (occurrence: None)
  Receive Date: 20100623
  Receipt Date: 20100614
  Transmission Date: 20101027
  Serious: No
  Sender: FDA-Public Use
  Company Number: US-BIOGENIDEC-2010BI020364

PATIENT
  Age: 40 Year
  Sex: Female

DRUGS (2)
  1. TYSABRI [Suspect]
     Indication: MULTIPLE SCLEROSIS
     Route: 042
     Dates: start: 20080801, end: 20081201
  2. TYSABRI [Suspect]
     Route: 042
     Dates: start: 20100426, end: 20100524

REACTIONS (4)
  - BLINDNESS [None]
  - DYSPNOEA [None]
  - EYE SWELLING [None]
  - URTICARIA [None]
